FAERS Safety Report 17362557 (Version 1)
Quarter: 2020Q1

REPORT INFORMATION
  Report Type: Spontaneous
  Country: US (occurrence: US)
  Receive Date: 20200202
  Receipt Date: 20200202
  Transmission Date: 20200409
  Serious: No
  Sender: FDA-Public Use
  Company Number: None

PATIENT
  Age: 66 Year
  Sex: Female
  Weight: 49.95 kg

DRUGS (12)
  1. ASPIRIN. [Concomitant]
     Active Substance: ASPIRIN
  2. EXEDRIN [Concomitant]
  3. LACTULOSE. [Concomitant]
     Active Substance: LACTULOSE
  4. CALCIUM+VIT D [Concomitant]
  5. PIQRAY [Suspect]
     Active Substance: ALPELISIB
     Indication: BREAST CANCER
     Route: 048
     Dates: start: 20200122
  6. OMEPRAZOLE. [Concomitant]
     Active Substance: OMEPRAZOLE
  7. ALDACTONE [Concomitant]
     Active Substance: SPIRONOLACTONE
  8. MVI [Concomitant]
     Active Substance: VITAMINS
  9. REGLAN [Concomitant]
     Active Substance: METOCLOPRAMIDE HYDROCHLORIDE
  10. TRAMADOL. [Concomitant]
     Active Substance: TRAMADOL
  11. GABAPENTIN. [Concomitant]
     Active Substance: GABAPENTIN
  12. IBUPROFEN. [Concomitant]
     Active Substance: IBUPROFEN

REACTIONS (4)
  - Vomiting [None]
  - Rash [None]
  - Diarrhoea [None]
  - Feeling hot [None]

NARRATIVE: CASE EVENT DATE: 20200202
